FAERS Safety Report 7134990-3 (Version None)
Quarter: 2010Q4

REPORT INFORMATION
  Report Type: 
  Country: None (occurrence: None)
  Receive Date: 20101203
  Receipt Date: 20101125
  Transmission Date: 20110411
  Serious: Yes (Hospitalization)
  Sender: FDA-Public Use
  Company Number: FR-MERCK-1011FRA00105

PATIENT
  Age: 89 Year
  Sex: Female

DRUGS (3)
  1. FOSAMAX [Suspect]
     Indication: OSTEOPOROSIS
     Route: 048
     Dates: start: 20100712, end: 20100910
  2. HYDROCHLOROTHIAZIDE [Concomitant]
     Indication: HYPERTENSION
     Route: 048
  3. JOSAMYCIN PROPIONATE [Suspect]
     Indication: FOLLICULITIS
     Route: 048
     Dates: start: 20100910, end: 20100913

REACTIONS (6)
  - CYTOLYTIC HEPATITIS [None]
  - EOSINOPHILIA [None]
  - HEPATITIS CHOLESTATIC [None]
  - JAUNDICE [None]
  - PRURITUS [None]
  - WHITE BLOOD CELL COUNT INCREASED [None]
